FAERS Safety Report 5940818-7 (Version None)
Quarter: 2008Q4

REPORT INFORMATION
  Report Type: 
  Country: None (occurrence: None)
  Receive Date: 20081030
  Receipt Date: 20081017
  Transmission Date: 20090506
  Serious: Yes (Life-Threatening, Other)
  Sender: FDA-Public Use
  Company Number: 2008BI028012

PATIENT
  Age: 40 Year
  Sex: Female

DRUGS (16)
  1. ZEVALIN [Suspect]
     Indication: B-CELL LYMPHOMA
     Dosage: 0.4 MCI/KG; 1X; IV
     Route: 042
     Dates: start: 20080911, end: 20080911
  2. ZEVALIN [Suspect]
     Indication: STEM CELL TRANSPLANT
     Dosage: 0.4 MCI/KG; 1X; IV
     Route: 042
     Dates: start: 20080911, end: 20080911
  3. RITUXIMAB [Concomitant]
  4. CARMUSTINE [Concomitant]
  5. CYTARABINE [Concomitant]
  6. ETOPOSIDE [Concomitant]
  7. MELPHALAN [Concomitant]
  8. RITUXIMAB [Concomitant]
  9. DOXORUBICIN HCL [Concomitant]
  10. CYCLOPHOSPHAMIDE [Concomitant]
  11. VINCRISTINE [Concomitant]
  12. BLEOMYCIN SULFATE [Concomitant]
  13. PREDNISONE TAB [Concomitant]
  14. METHOTREXATE [Concomitant]
  15. METHOTREXATE [Concomitant]
  16. METHOTREXATE [Concomitant]

REACTIONS (15)
  - APLASIA [None]
  - BRONCHIOLITIS [None]
  - COMPUTERISED TOMOGRAM ABNORMAL [None]
  - DERMATITIS EXFOLIATIVE [None]
  - FUNGAL TEST POSITIVE [None]
  - GASTROENTERITIS ESCHERICHIA COLI [None]
  - HAEMODYNAMIC INSTABILITY [None]
  - HYPERTHERMIA [None]
  - HYPOTENSION [None]
  - MUCOSAL INFLAMMATION [None]
  - NEUTROPENIA [None]
  - SEPTIC SHOCK [None]
  - STEM CELL TRANSPLANT [None]
  - TACHYCARDIA [None]
  - VASCULAR OCCLUSION [None]
